FAERS Safety Report 6336953-4 (Version None)
Quarter: 2009Q3

REPORT INFORMATION
  Report Type: 
  Country: None (occurrence: None)
  Receive Date: 20090901
  Receipt Date: 20090820
  Transmission Date: 20100115
  Serious: Yes (Life-Threatening, Hospitalization)
  Sender: FDA-Public Use
  Company Number: JP-SANOFI-SYNTHELABO-A01200907818

PATIENT
  Age: 71 Year
  Sex: Male
  Weight: 57 kg

DRUGS (9)
  1. PICILLIBACTA [Suspect]
     Indication: PNEUMONIA
     Route: 042
     Dates: start: 20090616, end: 20090622
  2. PICILLIBACTA [Suspect]
     Route: 042
     Dates: start: 20090630, end: 20090713
  3. LIPITOR [Concomitant]
     Indication: HYPERLIPIDAEMIA
     Route: 048
     Dates: start: 20090530
  4. BUFFERIN [Concomitant]
     Indication: ANGINA PECTORIS
     Route: 048
     Dates: start: 20090529
  5. LENDORMIN D [Concomitant]
     Indication: INSOMNIA
     Route: 048
  6. GASTER [Concomitant]
     Indication: PROPHYLAXIS AGAINST GASTROINTESTINAL ULCER
     Route: 048
  7. PERSANTINE [Concomitant]
     Indication: ANGINA PECTORIS
     Route: 048
  8. PLAVIX [Suspect]
     Indication: STENT PLACEMENT
     Dosage: UNK
     Route: 048
     Dates: start: 20090529, end: 20090714
  9. PLAVIX [Suspect]
     Indication: ANGINA PECTORIS
     Dosage: UNK
     Route: 048
     Dates: start: 20090529, end: 20090714

REACTIONS (2)
  - AGRANULOCYTOSIS [None]
  - SEPSIS [None]
